FAERS Safety Report 10015776 (Version 1)
Quarter: 2014Q1

REPORT INFORMATION
  Report Type: Spontaneous
  Country: US (occurrence: US)
  Receive Date: 20140317
  Receipt Date: 20140317
  Transmission Date: 20141002
  Serious: Yes (Disabling, Other)
  Sender: FDA-Public Use
  Company Number: US-009507513-1403USA005796

PATIENT
  Sex: Female

DRUGS (8)
  1. FOSAMAX [Suspect]
     Indication: OSTEOPOROSIS
     Route: 048
  2. FOSAMAX [Suspect]
     Indication: OSTEOPENIA
  3. ACTONEL [Suspect]
     Indication: OSTEOPOROSIS
  4. ACTONEL [Suspect]
     Indication: OSTEOPENIA
  5. BONIVA [Suspect]
     Indication: OSTEOPOROSIS
  6. BONIVA [Suspect]
     Indication: OSTEOPENIA
  7. RECLAST [Suspect]
     Indication: OSTEOPOROSIS
  8. RECLAST [Suspect]
     Indication: OSTEOPENIA

REACTIONS (5)
  - Femur fracture [Not Recovered/Not Resolved]
  - Low turnover osteopathy [Not Recovered/Not Resolved]
  - Osteoporosis [Not Recovered/Not Resolved]
  - Stress fracture [Not Recovered/Not Resolved]
  - Femur fracture [Not Recovered/Not Resolved]
